FAERS Safety Report 5160221-X (Version None)
Quarter: 2006Q4

REPORT INFORMATION
  Report Type: 
  Country: None (occurrence: None)
  Receive Date: 20061120
  Receipt Date: 20061115
  Transmission Date: 20070319
  Serious: Yes (Hospitalization)
  Sender: FDA-Public Use
  Company Number: 2006AL003564

PATIENT
  Age: 67 Year
  Sex: Female

DRUGS (2)
  1. DIGOXIN [Suspect]
     Dosage: 0.25 MG PO
     Route: 048
  2. LANOXICAPS [Concomitant]

REACTIONS (4)
  - CONFUSIONAL STATE [None]
  - DRUG DISPENSING ERROR [None]
  - INCORRECT DOSE ADMINISTERED [None]
  - THERAPEUTIC AGENT TOXICITY [None]
